FAERS Safety Report 7600917-0 (Version None)
Quarter: 2011Q3

REPORT INFORMATION
  Report Type: 
  Country: None (occurrence: None)
  Receive Date: 20110706
  Receipt Date: 20110706
  Transmission Date: 20111222
  Serious: Yes (Other)
  Sender: FDA-Public Use
  Company Number: None

PATIENT
  Sex: Male
  Weight: 80.2867 kg

DRUGS (1)
  1. NEXIUM [Suspect]
     Indication: GASTROOESOPHAGEAL REFLUX DISEASE
     Dosage: 40G DAILY PO
     Route: 048
     Dates: start: 20070227, end: 20110531

REACTIONS (3)
  - FEMUR FRACTURE [None]
  - INJURY [None]
  - OSTEOPOROSIS [None]
